FAERS Safety Report 9558308 (Version 1)
Quarter: 2013Q3

REPORT INFORMATION
  Report Type: Spontaneous
  Country: FR (occurrence: FR)
  Receive Date: 20130926
  Receipt Date: 20130926
  Transmission Date: 20140515
  Serious: Yes (Hospitalization)
  Sender: FDA-Public Use
  Company Number: FR-VERTEX PHARMACEUTICALS INC-2013-009940

PATIENT
  Age: 61 Year
  Sex: Female

DRUGS (6)
  1. INCIVO [Suspect]
     Indication: HEPATITIS C
     Route: 048
     Dates: start: 20120410, end: 20120507
  2. INCIVO [Suspect]
     Indication: HEPATIC CIRRHOSIS
     Route: 048
     Dates: start: 20120410, end: 20120507
  3. RIBAVIRIN [Suspect]
     Indication: HEPATIC CIRRHOSIS
     Dosage: UNK
     Route: 048
     Dates: start: 20120410, end: 20120507
  4. RIBAVIRIN [Suspect]
     Indication: HEPATITIS C
  5. VIRAFERONPEG [Concomitant]
     Indication: HEPATITIS C
     Dosage: UNK
     Route: 058
     Dates: start: 20120410, end: 20120507
  6. VIRAFERONPEG [Concomitant]
     Indication: HEPATIC CIRRHOSIS
     Dosage: DOSAGE FORM: UNSPECIFIED
     Route: 058
     Dates: start: 20120410, end: 20120507

REACTIONS (4)
  - Encephalopathy [Recovered/Resolved]
  - Hepatic function abnormal [Recovered/Resolved]
  - Thrombocytopenia [Unknown]
  - Leukopenia [Unknown]
